FAERS Safety Report 4477220-3 (Version None)
Quarter: 2004Q4

REPORT INFORMATION
  Report Type: 
  Country: None (occurrence: None)
  Receive Date: 20041013
  Receipt Date: 20040930
  Transmission Date: 20050328
  Serious: Yes (Life-Threatening, Hospitalization)
  Sender: FDA-Public Use
  Company Number: A01200404889

PATIENT
  Age: 74 Year
  Sex: Female

DRUGS (8)
  1. CLOPIDOGREL - TABLET - 75 MG [Suspect]
     Dosage: 75 MG QD, ORAL
     Route: 048
     Dates: start: 20010812
  2. FUROSEMIDE [Concomitant]
  3. ACETYLSALICYLIC ACID SRT [Concomitant]
  4. PREDNISOLONE [Concomitant]
  5. CALTRATE (CALCIUM CARBONATE) [Concomitant]
  6. ATENOLOL [Concomitant]
  7. PLAQUENIL [Concomitant]
  8. RAMIPRIL [Concomitant]

REACTIONS (1)
  - FEBRILE NEUTROPENIA [None]
